FAERS Safety Report 24167013 (Version 3)
Quarter: 2024Q4

REPORT INFORMATION
  Report Type: Spontaneous
  Country: US (occurrence: US)
  Receive Date: 20240802
  Receipt Date: 20241227
  Transmission Date: 20250114
  Serious: Yes (Hospitalization, Other)
  Sender: NOVARTIS
  Company Number: US-002147023-NVSC2024US157423

PATIENT
  Age: 54 Year
  Sex: Female

DRUGS (1)
  1. GILENYA [Suspect]
     Active Substance: FINGOLIMOD HYDROCHLORIDE
     Indication: Product used for unknown indication
     Dosage: 0.5 ML, QD
     Route: 065

REACTIONS (9)
  - Confusional state [Unknown]
  - Speech disorder [Unknown]
  - Mental status changes [Unknown]
  - Seizure [Unknown]
  - Myocardial infarction [Unknown]
  - Urinary tract infection [Unknown]
  - Sepsis [Unknown]
  - Cardiac arrest [Unknown]
  - Feeling abnormal [Unknown]

NARRATIVE: CASE EVENT DATE: 20240401
